FAERS Safety Report 10741660 (Version 1)
Quarter: 2015Q1

REPORT INFORMATION
  Report Type: Report from Study
  Country: US (occurrence: None)
  Receive Date: 20150123
  Receipt Date: 20150123
  Transmission Date: 20150721
  Serious: Yes (Other)
  Sender: FDA-Public Use
  Company Number: AEGR001093

PATIENT
  Age: 33 Year
  Sex: Female

DRUGS (12)
  1. JUXTAPID [Suspect]
     Active Substance: LOMITAPIDE MESYLATE
     Indication: TYPE IIA HYPERLIPIDAEMIA
     Route: 048
     Dates: start: 20140624
  2. DESVENLAFAXINE. [Concomitant]
     Active Substance: DESVENLAFAXINE
  3. NIACIN. [Concomitant]
     Active Substance: NIACIN
  4. CILOSTAZOL. [Concomitant]
     Active Substance: CILOSTAZOL
  5. RAMIPRIL. [Concomitant]
     Active Substance: RAMIPRIL
  6. CARVEDILOL. [Concomitant]
     Active Substance: CARVEDILOL
  7. EZETIMIBE. [Concomitant]
     Active Substance: EZETIMIBE
  8. ROSUVASTATIN [Concomitant]
     Active Substance: ROSUVASTATIN
  9. ASPIRIN (ACETYLSALICYLIC ACID) [Concomitant]
     Active Substance: ASPIRIN
  10. CLOPIDOGREL [Concomitant]
     Active Substance: CLOPIDOGREL BISULFATE
  11. COLESEVELAM [Concomitant]
     Active Substance: COLESEVELAM
  12. ZOLPIDEM [Concomitant]
     Active Substance: ZOLPIDEM\ZOLPIDEM TARTRATE

REACTIONS (1)
  - Aortic valve sclerosis [None]

NARRATIVE: CASE EVENT DATE: 20140915
